FAERS Safety Report 7012145-0 (Version None)
Quarter: 2010Q3

REPORT INFORMATION
  Report Type: 
  Country: None (occurrence: None)
  Receive Date: 20100924
  Receipt Date: 20100913
  Transmission Date: 20110219
  Serious: Yes (Other)
  Sender: FDA-Public Use
  Company Number: ES-ELI_LILLY_AND_COMPANY-ES201009003940

PATIENT
  Sex: Female
  Weight: 65 kg

DRUGS (2)
  1. FORTEO [Suspect]
     Indication: OSTEOPOROSIS
     Dosage: 20 UG, DAILY (1/D)
     Route: 058
     Dates: start: 20091017
  2. RILAST [Concomitant]
     Indication: ASTHMA
     Dosage: UNK, 1 PUFF TWICE A DAY
     Route: 055

REACTIONS (2)
  - DRUG INEFFECTIVE [None]
  - TENDON RUPTURE [None]
